FAERS Safety Report 7018113-7 (Version None)
Quarter: 2010Q3

REPORT INFORMATION
  Report Type: 
  Country: None (occurrence: None)
  Receive Date: 20100927
  Receipt Date: 20100927
  Transmission Date: 20110219
  Serious: No
  Sender: FDA-Public Use
  Company Number: None

PATIENT
  Age: 54 Year
  Sex: Female
  Weight: 54.4316 kg

DRUGS (1)
  1. TERBINAFINE HYDROCHLORIDE [Suspect]
     Indication: ONYCHOMYCOSIS
     Dosage: 1 TAB - 250 MG DAILY PO
     Route: 048
     Dates: start: 20100616, end: 20100820

REACTIONS (5)
  - LIGAMENT DISORDER [None]
  - MUSCLE SPASMS [None]
  - MYALGIA [None]
  - SENSATION OF HEAVINESS [None]
  - TENDON DISORDER [None]
